FAERS Safety Report 9369038 (Version 2)
Quarter: 2013Q3

REPORT INFORMATION
  Report Type: Spontaneous
  Country: GB (occurrence: GB)
  Receive Date: 20130626
  Receipt Date: 20130819
  Transmission Date: 20140515
  Serious: No
  Sender: FDA-Public Use
  Company Number: PHFR2013GB003581

PATIENT
  Sex: Male

DRUGS (1)
  1. TASIGNA [Suspect]
     Route: 048
     Dates: start: 201203, end: 201302

REACTIONS (2)
  - Rash [Recovering/Resolving]
  - Drug intolerance [Unknown]
